FAERS Safety Report 15676442 (Version 6)
Quarter: 2019Q3

REPORT INFORMATION
  Report Type: Spontaneous
  Country: US (occurrence: US)
  Receive Date: 20181130
  Receipt Date: 20190808
  Transmission Date: 20191004
  Serious: Yes (Congenital Anomaly, Other)
  Sender: FDA-Public Use
  Company Number: PHEH2018US050171

PATIENT
  Sex: Female

DRUGS (1)
  1. ZOFRAN ODT [Suspect]
     Active Substance: ONDANSETRON HYDROCHLORIDE
     Indication: FOETAL EXPOSURE DURING PREGNANCY
     Dosage: MOTHER DOSE: 4 MG, QD
     Route: 064

REACTIONS (18)
  - Transposition of the great vessels [Unknown]
  - Cyanosis neonatal [Unknown]
  - Oedema neonatal [Unknown]
  - Pleural effusion [Unknown]
  - Radial head dislocation [Unknown]
  - Underweight [Unknown]
  - Injury [Unknown]
  - Atrial septal defect [Unknown]
  - Congenital choroid plexus cyst [Unknown]
  - Cardiomegaly [Unknown]
  - Neonatal respiratory distress [Unknown]
  - Pulmonary congestion [Unknown]
  - Foetal exposure during pregnancy [Unknown]
  - Acidosis [Unknown]
  - Eczema [Unknown]
  - Heart disease congenital [Unknown]
  - Patent ductus arteriosus [Unknown]
  - Arrhythmia [Unknown]
